FAERS Safety Report 13940405 (Version 3)
Quarter: 2017Q4

REPORT INFORMATION
  Report Type: Spontaneous
  Country: US (occurrence: US)
  Receive Date: 20170906
  Receipt Date: 20171214
  Transmission Date: 20180320
  Serious: No
  Sender: FDA-Public Use
  Company Number: US-PFIZER INC-2017383446

PATIENT
  Age: 70 Year
  Sex: Female

DRUGS (2)
  1. IBRANCE [Suspect]
     Active Substance: PALBOCICLIB
     Indication: GASTRIC CANCER
     Dosage: 75 MG, CYCLIC (FOR 21 DAYS-7 DAYS REST)
     Dates: start: 201710
  2. SULINDAC. [Concomitant]
     Active Substance: SULINDAC
     Dosage: 150 MG, UNK
     Dates: start: 201710

REACTIONS (1)
  - Product use in unapproved indication [Recovering/Resolving]
